FAERS Safety Report 20078592 (Version 1)
Quarter: 2021Q4

REPORT INFORMATION
  Report Type: Other
  Country: US (occurrence: US)
  Receive Date: 20211117
  Receipt Date: 20211117
  Transmission Date: 20220304
  Serious: Yes (Hospitalization)
  Sender: FDA-Public Use
  Company Number: US-BoehringerIngelheim-2021-BI-136802

PATIENT
  Age: 6 Year

DRUGS (5)
  1. ALTEPLASE [Suspect]
     Active Substance: ALTEPLASE
     Indication: Heart disease congenital
     Dosage: VIA NEBULIZER 1 MG/KG (MAX 50 KG)
     Route: 065
  2. ALTEPLASE [Suspect]
     Active Substance: ALTEPLASE
     Dosage: VIA BRONCHOSCOPY 0.7 MG/KG ( MAX 50 KG)
     Route: 065
  3. ALTEPLASE [Suspect]
     Active Substance: ALTEPLASE
     Dosage: CONCENTRATION 2 MG/ML.
     Route: 065
  4. HEPARIN SODIUM [Suspect]
     Active Substance: HEPARIN SODIUM
     Indication: Product used for unknown indication
     Dosage: 3000-4000 IU/KG
     Route: 065
  5. HEPARIN SODIUM [Suspect]
     Active Substance: HEPARIN SODIUM
     Dosage: 20000 UNIT/ML
     Route: 065

REACTIONS (2)
  - Pulmonary haemorrhage [Recovered/Resolved]
  - Off label use [Unknown]
